FAERS Safety Report 17433528 (Version 3)
Quarter: 2020Q1

REPORT INFORMATION
  Report Type: Spontaneous
  Country: US (occurrence: US)
  Receive Date: 20200219
  Receipt Date: 20200331
  Transmission Date: 20200409
  Serious: Yes (Hospitalization)
  Sender: FDA-Public Use
  Company Number: US-HORIZON-KRY-0202-2020

PATIENT
  Age: 91 Year
  Sex: Female

DRUGS (2)
  1. METHYLPREDNISOLONE. [Concomitant]
     Active Substance: METHYLPREDNISOLONE
  2. KRYSTEXXA [Suspect]
     Active Substance: PEGLOTICASE
     Indication: GOUT
     Dosage: IV EVERY 2 WEEKS
     Route: 042
     Dates: start: 20191126

REACTIONS (5)
  - Pneumonia aspiration [Not Recovered/Not Resolved]
  - Intentional dose omission [Recovered/Resolved]
  - Gout [Not Recovered/Not Resolved]
  - Inappropriate schedule of product administration [Recovered/Resolved]
  - Peripheral swelling [Unknown]
